FAERS Safety Report 19578120 (Version 1)
Quarter: 2021Q3

REPORT INFORMATION
  Report Type: Spontaneous
  Country: US (occurrence: US)
  Receive Date: 20210719
  Receipt Date: 20210719
  Transmission Date: 20211014
  Serious: No
  Sender: FDA-Public Use
  Company Number: US-PAIPHARMA-2021-US-011778

PATIENT
  Age: 65 Year
  Sex: Male
  Weight: 54.43 kg

DRUGS (2)
  1. OXYCODONE [Concomitant]
     Active Substance: OXYCODONE
  2. LORAZEPAM ORAL SOLUTION, USP, AF SF DF [Suspect]
     Active Substance: LORAZEPAM
     Indication: ANXIETY
     Dosage: 2ML EVERY 8 HOURS
     Route: 048
     Dates: start: 20210504

REACTIONS (1)
  - Drug ineffective [Not Recovered/Not Resolved]

NARRATIVE: CASE EVENT DATE: 20210504
